FAERS Safety Report 21589673 (Version 1)
Quarter: 2022Q4

REPORT INFORMATION
  Report Type: Spontaneous
  Country: JP (occurrence: JP)
  Receive Date: 20221114
  Receipt Date: 20221114
  Transmission Date: 20230113
  Serious: Yes (Other)
  Sender: FDA-Public Use
  Company Number: JP-GILEAD-2022-0604516

PATIENT
  Age: 45 Year
  Sex: Female

DRUGS (2)
  1. VEKLURY [Suspect]
     Active Substance: REMDESIVIR
     Indication: COVID-19
     Dosage: UNK
     Route: 065
     Dates: start: 202201
  2. SOTROVIMAB [Concomitant]
     Active Substance: SOTROVIMAB
     Indication: COVID-19
     Dosage: UNK
     Dates: start: 202201

REACTIONS (3)
  - Renal impairment [Recovering/Resolving]
  - Oedema [Unknown]
  - Urine output decreased [Recovering/Resolving]

NARRATIVE: CASE EVENT DATE: 20220301
